FAERS Safety Report 5097093-8 (Version None)
Quarter: 2006Q3

REPORT INFORMATION
  Report Type: 
  Country: None (occurrence: None)
  Receive Date: 20060831
  Receipt Date: 20060626
  Transmission Date: 20061208
  Serious: Yes (Other)
  Sender: FDA-Public Use
  Company Number: 2006BH011497

PATIENT
  Age: 1 Year
  Sex: Male
  Weight: 10 kg

DRUGS (6)
  1. ADVATE (OCTOCOG ALFA) [Suspect]
     Indication: FACTOR VIII DEFICIENCY
     Dosage: 30 UG/KG; AS NEEDED;
     Dates: end: 20060512
  2. ADVATE (OCTOCOG ALFA) [Suspect]
  3. ADVATE (OCTOCOG ALFA) [Suspect]
  4. ADVATE (OCTOCOG ALFA) [Suspect]
  5. ADVATE (OCTOCOG ALFA) [Suspect]
  6. ADVATE (OCTOCOG ALFA) [Suspect]

REACTIONS (3)
  - ANTI FACTOR VIII ANTIBODY POSITIVE [None]
  - CONTUSION [None]
  - INFUSION SITE BRUISING [None]
